FAERS Safety Report 21249146 (Version 1)
Quarter: 2022Q3

REPORT INFORMATION
  Report Type: Spontaneous
  Country: CN (occurrence: CN)
  Receive Date: 20220824
  Receipt Date: 20220824
  Transmission Date: 20221027
  Serious: Yes (Death, Hospitalization)
  Sender: FDA-Public Use
  Company Number: CN-PFIZER INC-PV202200041799

PATIENT
  Age: 31 Year
  Sex: Male

DRUGS (7)
  1. AZITHROMYCIN [Suspect]
     Active Substance: AZITHROMYCIN
     Indication: Cat scratch disease
     Dosage: UNK
  2. DOXYCYCLINE [Suspect]
     Active Substance: DOXYCYCLINE
     Indication: Cat scratch disease
     Dosage: UNK
  3. RIFAMPIN [Suspect]
     Active Substance: RIFAMPIN
     Indication: Cat scratch disease
     Dosage: UNK
  4. LAMIVUDINE [Concomitant]
     Active Substance: LAMIVUDINE
     Indication: Acquired immunodeficiency syndrome
  5. DOLUTEGRAVIR [Concomitant]
     Active Substance: DOLUTEGRAVIR
     Indication: Acquired immunodeficiency syndrome
  6. TENOFOVIR [Concomitant]
     Active Substance: TENOFOVIR
     Indication: Acquired immunodeficiency syndrome
  7. MEROPENEM [Concomitant]
     Active Substance: MEROPENEM
     Indication: Antibiotic therapy

REACTIONS (1)
  - Drug ineffective [Fatal]
